FAERS Safety Report 9636226 (Version 1)
Quarter: 2013Q4

REPORT INFORMATION
  Report Type: Spontaneous
  Country: US (occurrence: US)
  Receive Date: 20131021
  Receipt Date: 20131021
  Transmission Date: 20140711
  Serious: Yes (Other)
  Sender: FDA-Public Use
  Company Number: US-OTSUKA-US-2013-10777

PATIENT
  Age: 37 Year
  Sex: Female

DRUGS (5)
  1. ABILIFY MAINTENA [Suspect]
     Indication: SCHIZOPHRENIA
     Dosage: 400 MG MILLIGRAM(S), UNK
     Dates: start: 20130412
  2. INSULIN [Concomitant]
     Indication: DIABETES MELLITUS
  3. LYRICA [Concomitant]
  4. DILANTIN [Concomitant]
     Indication: CONVULSION
  5. LAMICTAL [Concomitant]

REACTIONS (2)
  - Convulsion [Unknown]
  - Injection site erythema [Unknown]
